FAERS Safety Report 9675975 (Version 1)
Quarter: 2013Q4

REPORT INFORMATION
  Report Type: Spontaneous
  Country: BR (occurrence: BR)
  Receive Date: 20131107
  Receipt Date: 20131107
  Transmission Date: 20140711
  Serious: Yes (Other)
  Sender: FDA-Public Use
  Company Number: BR-PFIZER INC-2013315813

PATIENT
  Age: 50 Year
  Sex: Female
  Weight: 57 kg

DRUGS (4)
  1. LYRICA [Suspect]
     Indication: FIBROMYALGIA
     Dosage: UNK
     Route: 048
     Dates: start: 201306, end: 2013
  2. AMITRIPTYLINE [Concomitant]
     Indication: INTERVERTEBRAL DISC PROTRUSION
     Dosage: UNK
     Dates: start: 2008
  3. AMITRIPTYLINE [Concomitant]
     Indication: BACK PAIN
  4. AMITRIPTYLINE [Concomitant]
     Indication: JOINT INJURY

REACTIONS (5)
  - Mobility decreased [Unknown]
  - Dysstasia [Unknown]
  - Fall [Unknown]
  - Nausea [Unknown]
  - Dizziness [Unknown]
